FAERS Safety Report 18036385 (Version 1)
Quarter: 2020Q3

REPORT INFORMATION
  Report Type: Spontaneous
  Country: CN (occurrence: CN)
  Receive Date: 20200717
  Receipt Date: 20200717
  Transmission Date: 20201103
  Serious: Yes (Hospitalization, Other)
  Sender: FDA-Public Use
  Company Number: CN-GLAXOSMITHKLINE-CN2020APC115734

PATIENT
  Age: 60 Year
  Sex: Male
  Weight: 66 kg

DRUGS (4)
  1. LAMOTRIGINE. [Suspect]
     Active Substance: LAMOTRIGINE
     Dosage: 50 MG, QD
     Route: 048
  2. COMPOUND SODIUM VALPROATE AND VALPROIC ACID SUSTAINED RELEASE TABLETS [Concomitant]
     Indication: EPILEPSY
     Dosage: 0.5 G, QD
     Route: 048
     Dates: start: 20200601, end: 20200629
  3. SANQI TONGSHU CAPSULE [Concomitant]
     Indication: CEREBRAL INFARCTION
     Dosage: 0.2 G, TID
     Route: 048
     Dates: start: 20200509, end: 20200620
  4. LAMOTRIGINE. [Suspect]
     Active Substance: LAMOTRIGINE
     Indication: EPILEPSY
     Dosage: 6.25 MG, QD
     Route: 048
     Dates: start: 20200509

REACTIONS (8)
  - Mouth ulceration [Recovering/Resolving]
  - Platelet count decreased [Recovering/Resolving]
  - Rash morbilliform [Recovering/Resolving]
  - White blood cell count decreased [Recovering/Resolving]
  - Red blood cell count decreased [Recovering/Resolving]
  - Pyrexia [Recovering/Resolving]
  - Lymphadenopathy [Recovering/Resolving]
  - Drug reaction with eosinophilia and systemic symptoms [Recovering/Resolving]

NARRATIVE: CASE EVENT DATE: 20200617
